FAERS Safety Report 7702546-7 (Version None)
Quarter: 2011Q3

REPORT INFORMATION
  Report Type: 
  Country: None (occurrence: None)
  Receive Date: 20110823
  Receipt Date: 20110815
  Transmission Date: 20111222
  Serious: No
  Sender: FDA-Public Use
  Company Number: US-BIOGENIDEC-2011BI031245

PATIENT
  Sex: Female

DRUGS (2)
  1. PAIN PILLS NOS [Concomitant]
     Indication: PAIN
  2. TYSABRI [Suspect]
     Indication: MULTIPLE SCLEROSIS
     Route: 042
     Dates: start: 20101109

REACTIONS (3)
  - ORAL HERPES [None]
  - STRESS [None]
  - MULTIPLE SCLEROSIS [None]
